FAERS Safety Report 13783582 (Version 2)
Quarter: 2017Q4

REPORT INFORMATION
  Report Type: Spontaneous
  Country: US (occurrence: US)
  Receive Date: 20170724
  Receipt Date: 20171026
  Transmission Date: 20180320
  Serious: Yes (Hospitalization, Other)
  Sender: FDA-Public Use
  Company Number: US-BAYER-2017-134879

PATIENT
  Age: 18 Year
  Sex: Female
  Weight: 52.16 kg

DRUGS (1)
  1. GADAVIST [Suspect]
     Active Substance: GADOBUTROL
     Indication: COMPUTERISED TOMOGRAM PELVIS
     Dosage: 7.5 ML, ONCE
     Route: 042
     Dates: start: 20170628, end: 20170628

REACTIONS (8)
  - Malaise [None]
  - Feeling abnormal [None]
  - Cardiopulmonary failure [None]
  - Nausea [None]
  - Anxiety [None]
  - Anaphylactic shock [None]
  - Cough [None]
  - Vomiting [None]

NARRATIVE: CASE EVENT DATE: 201706
